FAERS Safety Report 8308581-2 (Version None)
Quarter: 2012Q2

REPORT INFORMATION
  Report Type: 
  Country: None (occurrence: None)
  Receive Date: 20120424
  Receipt Date: 20120413
  Transmission Date: 20120825
  Serious: Yes (Other)
  Sender: FDA-Public Use
  Company Number: CN-ROCHE-771616

PATIENT
  Age: 62 Year
  Sex: Male
  Weight: 65 kg

DRUGS (7)
  1. XELODA [Suspect]
     Route: 048
  2. OXALIPLATIN [Concomitant]
     Indication: COLON CANCER
     Route: 041
     Dates: start: 20081201, end: 20090304
  3. ERBITUX [Concomitant]
     Indication: COLON CANCER
     Dates: start: 20100101
  4. ENDOSTAR [Concomitant]
     Indication: COLON CANCER
     Dates: start: 20100101
  5. XELODA [Suspect]
     Route: 048
     Dates: start: 20110426, end: 20111001
  6. XELODA [Suspect]
     Indication: COLON CANCER
     Route: 048
     Dates: start: 20081101, end: 20090304
  7. XELODA [Suspect]
     Route: 048
     Dates: start: 20090901, end: 20100317

REACTIONS (6)
  - HYPOAESTHESIA [None]
  - MOUTH ULCERATION [None]
  - CARBOHYDRATE ANTIGEN 19-9 INCREASED [None]
  - CARCINOEMBRYONIC ANTIGEN INCREASED [None]
  - GINGIVAL PAIN [None]
  - METASTASES TO LIVER [None]
